FAERS Safety Report 11905934 (Version 1)
Quarter: 2016Q1

REPORT INFORMATION
  Report Type: Spontaneous
  Country: None (occurrence: None)
  Receive Date: 20160108
  Receipt Date: 20160108
  Transmission Date: 20160526
  Serious: Yes (Life-Threatening, Hospitalization)
  Sender: FDA-Public Use
  Company Number: None

PATIENT
  Age: 84 Year
  Sex: Male
  Weight: 84 kg

DRUGS (1)
  1. ALLOPURINOL 100 MG [Suspect]
     Active Substance: ALLOPURINOL
     Indication: GOUT

REACTIONS (5)
  - Renal failure [None]
  - Rash [None]
  - Cholestasis [None]
  - Liver function test increased [None]
  - Eosinophilia [None]

NARRATIVE: CASE EVENT DATE: 20131105
